FAERS Safety Report 5013870-3 (Version None)
Quarter: 2006Q2

REPORT INFORMATION
  Report Type: 
  Country: None (occurrence: None)
  Receive Date: 20060525
  Receipt Date: 20060516
  Transmission Date: 20061013
  Serious: Yes (Hospitalization, Other)
  Sender: FDA-Public Use
  Company Number: HQWYE067701MAY06

PATIENT
  Age: 49 Year
  Sex: Female

DRUGS (3)
  1. RAPAMUNE [Suspect]
     Indication: PROPHYLAXIS AGAINST TRANSPLANT REJECTION
     Dosage: 5 MG ORAL
     Route: 048
     Dates: start: 20051125, end: 20060427
  2. CELLCEPT [Concomitant]
  3. LESCOL [Concomitant]

REACTIONS (9)
  - ALPHA GLOBULIN INCREASED [None]
  - ARTHRITIS [None]
  - C-REACTIVE PROTEIN INCREASED [None]
  - CONDITION AGGRAVATED [None]
  - CRYSTAL ARTHROPATHY [None]
  - EXTRAVASATION [None]
  - HYPOALBUMINAEMIA [None]
  - IMMUNOGLOBULINS INCREASED [None]
  - OEDEMA [None]
